FAERS Safety Report 23079516 (Version 6)
Quarter: 2023Q4

REPORT INFORMATION
  Report Type: Report from Study
  Country: GB (occurrence: GB)
  Receive Date: 20231018
  Receipt Date: 20231207
  Transmission Date: 20240110
  Serious: Yes (Hospitalization)
  Sender: FDA-Public Use
  Company Number: GB-ABBVIE-5449775

PATIENT
  Age: 4 Year
  Sex: Female
  Weight: 13.8 kg

DRUGS (10)
  1. VENETOCLAX [Suspect]
     Active Substance: VENETOCLAX
     Indication: Neuroblastoma
     Dosage: ON 08/OCT/2023, MOST RECENT DOSE OF STUDY DRUG PRIOR TO AE IS 120 MG ( DOSE CONCENTRATION 25MG)?S...
     Route: 048
     Dates: start: 20231004
  2. VENETOCLAX [Suspect]
     Active Substance: VENETOCLAX
     Indication: Neuroblastoma
     Dosage: START DATE OF MOST RECENT DOSE OF STUDY DRUG PRIOR TO AE: 08/OCT/2023, DOSE LAST STUDY DRUG ADMIN...
     Route: 048
  3. IDASANUTLIN [Suspect]
     Active Substance: IDASANUTLIN
     Indication: Neuroblastoma
     Dosage: DOSE LAST STUDY DRUG ADMIN PRIOR AE: 55 MG, START DATE OF MOST RECENT DOSE ?OF STUDY DRUG PRIOR T...
     Route: 048
     Dates: start: 20231004
  4. IDASANUTLIN [Suspect]
     Active Substance: IDASANUTLIN
     Indication: Neuroblastoma
     Route: 048
  5. LOPERAMIDE [Concomitant]
     Active Substance: LOPERAMIDE
     Indication: Diarrhoea
     Route: 048
     Dates: start: 20231003
  6. LOPERAMIDE [Concomitant]
     Active Substance: LOPERAMIDE
     Indication: Diarrhoea
     Route: 048
     Dates: start: 20231101
  7. LOPERAMIDE [Concomitant]
     Active Substance: LOPERAMIDE
     Indication: Diarrhoea
     Route: 048
     Dates: start: 20231004
  8. GLUCOSE, SODIUM CHLORIDE [Concomitant]
     Indication: Fluid replacement
     Route: 042
     Dates: start: 20231005, end: 20231006
  9. GLUCOSE, SODIUM CHLORIDE [Concomitant]
     Indication: Fluid replacement
     Route: 042
     Dates: start: 20231008, end: 20231009
  10. PENTAMIDINE [Concomitant]
     Active Substance: PENTAMIDINE
     Indication: Antifungal prophylaxis
     Route: 065
     Dates: start: 20231005

REACTIONS (3)
  - Vomiting [Recovered/Resolved]
  - Nausea [Recovered/Resolved]
  - Vomiting [Not Recovered/Not Resolved]

NARRATIVE: CASE EVENT DATE: 20231008
